FAERS Safety Report 5596632-8 (Version None)
Quarter: 2008Q1

REPORT INFORMATION
  Report Type: 
  Country: None (occurrence: None)
  Receive Date: 20080118
  Receipt Date: 20080109
  Transmission Date: 20080703
  Serious: Yes (Death, Other)
  Sender: FDA-Public Use
  Company Number: US-PFIZER INC-2008002765

PATIENT
  Age: 56 Year
  Sex: Female

DRUGS (5)
  1. CELECOXIB [Suspect]
     Route: 048
  2. TRAMADOL HCL [Suspect]
     Route: 048
  3. CYCLOBENZAPRINE HCL [Suspect]
     Route: 048
  4. ACETAMINOPHEN [Suspect]
     Route: 048
  5. ACETAMINOPHEN AND OXYCODONE HCL [Suspect]
     Route: 048

REACTIONS (3)
  - CARDIAC ARREST [None]
  - COMPLETED SUICIDE [None]
  - RESPIRATORY ARREST [None]
